FAERS Safety Report 4991232-2 (Version None)
Quarter: 2006Q2

REPORT INFORMATION
  Report Type: 
  Country: None (occurrence: None)
  Receive Date: 20060427
  Receipt Date: 20060411
  Transmission Date: 20061013
  Serious: Yes (Other)
  Sender: FDA-Public Use
  Company Number: 6022178

PATIENT
  Sex: Female

DRUGS (1)
  1. AMNESTEEM [Suspect]
     Indication: ACNE CYSTIC
     Dosage: 20,000 MG, 1 IN 1 D, ORAL
     Route: 048
     Dates: start: 20060201, end: 20060301

REACTIONS (5)
  - ACNE [None]
  - CONDITION AGGRAVATED [None]
  - DRUG INEFFECTIVE [None]
  - PSYCHOLOGICAL ABUSE [None]
  - SUICIDAL IDEATION [None]
